FAERS Safety Report 11434434 (Version 1)
Quarter: 2015Q3

REPORT INFORMATION
  Report Type: Spontaneous
  Country: US (occurrence: None)
  Receive Date: 20150828
  Receipt Date: 20150828
  Transmission Date: 20151125
  Serious: Yes (Other)
  Sender: FDA-Public Use
  Company Number: None

PATIENT
  Age: 56 Year
  Sex: Female
  Weight: 68.04 kg

DRUGS (9)
  1. KLONOPIN [Concomitant]
     Active Substance: CLONAZEPAM
  2. METOPROPROLOL ER SUCCINATE [Concomitant]
  3. VIT B COMPLEX [Concomitant]
  4. HYDROCHLOROTHIAZIDE. [Concomitant]
     Active Substance: HYDROCHLOROTHIAZIDE
  5. DEPAKOTE ER [Concomitant]
     Active Substance: DIVALPROEX SODIUM
  6. VITAMIN D [Concomitant]
     Active Substance: CHOLECALCIFEROL
  7. LAMOTRIGINE. [Suspect]
     Active Substance: LAMOTRIGINE
     Indication: DEPRESSION
     Dosage: 1 1/2 ONCE DAILY TAKEN BY MOUTH?2-3 WEEKS
     Route: 048
  8. FISH OIL [Concomitant]
     Active Substance: FISH OIL
  9. WALMART BRAND ZYRTEC [Concomitant]

REACTIONS (1)
  - Mania [None]

NARRATIVE: CASE EVENT DATE: 20141001
